FAERS Safety Report 7589970-0 (Version None)
Quarter: 2011Q3

REPORT INFORMATION
  Report Type: 
  Country: None (occurrence: None)
  Receive Date: 20110705
  Receipt Date: 20110610
  Transmission Date: 20111222
  Serious: Yes (Other)
  Sender: FDA-Public Use
  Company Number: A0874639A

PATIENT
  Age: 70 Year
  Sex: Female
  Weight: 127.3 kg

DRUGS (5)
  1. GLUCOPHAGE [Concomitant]
  2. METOPROLOL TARTRATE [Concomitant]
  3. ZOCOR [Concomitant]
  4. INSULIN [Concomitant]
  5. AVANDIA [Suspect]
     Indication: DIABETES MELLITUS
     Dosage: 4MG PER DAY
     Route: 048
     Dates: start: 20000101, end: 20060101

REACTIONS (9)
  - TRANSIENT ISCHAEMIC ATTACK [None]
  - HYPERAEMIA [None]
  - CARDIAC FAILURE CONGESTIVE [None]
  - HEART RATE IRREGULAR [None]
  - ARRHYTHMIA [None]
  - AORTIC VALVE SCLEROSIS [None]
  - TRICUSPID VALVE INCOMPETENCE [None]
  - MITRAL VALVE INCOMPETENCE [None]
  - MITRAL VALVE CALCIFICATION [None]
